FAERS Safety Report 19743801 (Version 1)
Quarter: 2021Q3

REPORT INFORMATION
  Report Type: Report from Study
  Country: None (occurrence: US)
  Receive Date: 20210824
  Receipt Date: 20210824
  Transmission Date: 20211014
  Serious: Yes (Other)
  Sender: FDA-Public Use
  Company Number: US-ABBVIE-21K-163-4042946-00

PATIENT
  Sex: Male

DRUGS (3)
  1. VENCLEXTA [Suspect]
     Active Substance: VENETOCLAX
     Dosage: TAKE ONE 50MG TABLET ALONG WITH TWO 10MG TABLETS BY MOUTH ONCE DAILY
     Route: 048
  2. VENCLEXTA [Suspect]
     Active Substance: VENETOCLAX
     Indication: NON-HODGKIN^S LYMPHOMA
     Dosage: TAKE TWO 10MG TABLETS ALONG WITH ONE 50MG TABLET BY MOUTH ONCE DAILY
     Route: 048
  3. VENCLEXTA [Suspect]
     Active Substance: VENETOCLAX
     Indication: NEOPLASM MALIGNANT
     Dosage: TAKE ONE 50MG TABLET ALONG WITH TWO 10MG TABLETS BY MOUTH ONCE DAILY
     Route: 048

REACTIONS (2)
  - Intentional product misuse [Unknown]
  - Rehabilitation therapy [Unknown]
